FAERS Safety Report 9557703 (Version 3)
Quarter: 2013Q4

REPORT INFORMATION
  Report Type: Report from Study
  Country: US (occurrence: US)
  Receive Date: 20130926
  Receipt Date: 20131031
  Transmission Date: 20140711
  Serious: Yes (Other)
  Sender: FDA-Public Use
  Company Number: US-ELI_LILLY_AND_COMPANY-US201308003650

PATIENT
  Age: 44 Year
  Sex: Male
  Weight: 112.93 kg

DRUGS (10)
  1. OLANZAPINE LONG-ACTING IM [Suspect]
     Indication: SCHIZOPHRENIA
     Dosage: 150 MG, UNK
     Route: 030
     Dates: start: 20100721, end: 20100721
  2. OLANZAPINE LONG-ACTING IM [Suspect]
     Dosage: 300 MG, UNK
     Route: 030
     Dates: start: 20100805, end: 20120503
  3. OLANZAPINE LONG-ACTING IM [Suspect]
     Dosage: 405 MG, UNK
     Route: 030
     Dates: start: 20120517, end: 20120809
  4. OLANZAPINE LONG-ACTING IM [Suspect]
     Dosage: 300 MG, UNK
     Route: 030
     Dates: start: 20120906
  5. OLANZAPINE LONG-ACTING IM [Suspect]
     Dosage: 300 MG, UNK
     Route: 030
     Dates: start: 20130808, end: 20130808
  6. ZYPREXA [Concomitant]
     Indication: PRODUCT USED FOR UNKNOWN INDICATION
     Dosage: 5 MG, QD
     Route: 048
     Dates: start: 201307
  7. DEPAKOTE ER [Concomitant]
     Dosage: 1000 MG, BID
     Dates: start: 2009
  8. ATIVAN [Concomitant]
     Dosage: 0.5 MG, BID
     Route: 048
     Dates: start: 2011
  9. VISTARIL                           /00058402/ [Concomitant]
     Indication: ANXIETY
     Dosage: 50 MG, QD
     Dates: start: 201306
  10. PRISTIQ [Concomitant]
     Indication: DEPRESSION
     Dosage: 100 MG, QD
     Route: 048
     Dates: start: 2012

REACTIONS (5)
  - Confusional state [Recovered/Resolved]
  - Delirium [Recovered/Resolved]
  - Disorientation [Recovered/Resolved]
  - Sedation [Recovered/Resolved]
  - Asthenia [Recovered/Resolved]
